FAERS Safety Report 10018089 (Version 1)
Quarter: 2014Q1

REPORT INFORMATION
  Report Type: Spontaneous
  Country: US (occurrence: US)
  Receive Date: 20140318
  Receipt Date: 20140318
  Transmission Date: 20141002
  Serious: Yes (Death, Other)
  Sender: FDA-Public Use
  Company Number: US-BRISTOL-MYERS SQUIBB COMPANY-18936518

PATIENT
  Sex: Male

DRUGS (1)
  1. ERBITUX [Suspect]
     Dates: start: 20130401

REACTIONS (2)
  - Death [Fatal]
  - Confusional state [Unknown]
